FAERS Safety Report 8444356-1 (Version None)
Quarter: 2012Q2

REPORT INFORMATION
  Report Type: 
  Country: None (occurrence: None)
  Receive Date: 20120618
  Receipt Date: 20120606
  Transmission Date: 20120825
  Serious: Yes (Other)
  Sender: FDA-Public Use
  Company Number: US-SANOFI-AVENTIS-2012SA041007

PATIENT
  Sex: Female

DRUGS (6)
  1. PLAVIX [Suspect]
  2. PLAVIX [Suspect]
     Indication: MYOCARDIAL INFARCTION
     Route: 048
     Dates: start: 20060101
  3. PLAVIX [Suspect]
     Indication: STENT PLACEMENT
     Route: 048
     Dates: start: 20060101
  4. PLAVIX [Suspect]
  5. ASPIRIN [Concomitant]
  6. AVAPRO [Concomitant]

REACTIONS (1)
  - ARTHROPATHY [None]
